FAERS Safety Report 16839212 (Version 1)
Quarter: 2019Q4

REPORT INFORMATION
  Report Type: Spontaneous
  Country: US (occurrence: US)
  Receive Date: 20190921
  Receipt Date: 20190921
  Transmission Date: 20200122
  Serious: Yes (Disabling)
  Sender: FDA-Public Use
  Company Number: None

PATIENT
  Age: 17 Year
  Sex: Female
  Weight: 53.55 kg

DRUGS (2)
  1. METHYLPHENIDATE. [Suspect]
     Active Substance: METHYLPHENIDATE
     Indication: ATTENTION DEFICIT/HYPERACTIVITY DISORDER
     Dosage: ?          QUANTITY:30 TABLET(S);?
     Route: 048
     Dates: start: 20190822, end: 20190912
  2. MELATONIN [Concomitant]
     Active Substance: MELATONIN

REACTIONS (8)
  - Feeling abnormal [None]
  - Product substitution issue [None]
  - Attention deficit/hyperactivity disorder [None]
  - Condition aggravated [None]
  - Headache [None]
  - Educational problem [None]
  - Affect lability [None]
  - Abdominal pain upper [None]

NARRATIVE: CASE EVENT DATE: 20190822
